FAERS Safety Report 8302010-0 (Version None)
Quarter: 2012Q2

REPORT INFORMATION
  Report Type: 
  Country: None (occurrence: None)
  Receive Date: 20120402
  Receipt Date: 20120321
  Transmission Date: 20120825
  Serious: Yes (Hospitalization, Other)
  Sender: FDA-Public Use
  Company Number: 2012031163

PATIENT
  Age: 65 Year
  Sex: Female
  Weight: 67.1324 kg

DRUGS (27)
  1. FLUOXETINE [Concomitant]
  2. FAMOTIDINE [Concomitant]
  3. PULMICORT [Concomitant]
  4. SPIRONOLACTONE [Concomitant]
  5. SEREVENT [Concomitant]
  6. FOLIC ACID [Concomitant]
  7. FOLCAPS (VITAMINS) [Concomitant]
  8. VANCOCIN (VANCOMYCIN HYDROCHLORIDE) [Concomitant]
  9. HIZENTRA [Suspect]
     Indication: IMMUNODEFICIENCY COMMON VARIABLE
     Dosage: SEE IMAGE
     Route: 058
     Dates: start: 20110210
  10. HIZENTRA [Suspect]
     Indication: IMMUNODEFICIENCY COMMON VARIABLE
     Dosage: SEE IMAGE
     Route: 058
     Dates: start: 20110210
  11. HIZENTRA [Suspect]
     Indication: IMMUNODEFICIENCY COMMON VARIABLE
     Dosage: SEE IMAGE
     Route: 058
     Dates: start: 20120315, end: 20120315
  12. ESTRING [Concomitant]
  13. FLUTICASONE PROPIONATE [Concomitant]
  14. PATANOL [Concomitant]
  15. TEVETEN [Concomitant]
  16. VITAMIN E [Concomitant]
  17. XOPENEX [Concomitant]
  18. HIZENTRA [Suspect]
  19. ASPIRIN [Concomitant]
  20. LEXAPRO [Concomitant]
  21. HIZENTRA [Suspect]
  22. CARTIA XT [Concomitant]
  23. ENTOCORT EC [Concomitant]
  24. DUONEB [Concomitant]
  25. ACETAMINOPHEN [Concomitant]
  26. AMERGE [Concomitant]
  27. MULTIVITAMIN (ACCOMIN MULTIVITAMIN) [Concomitant]

REACTIONS (2)
  - CLOSTRIDIAL INFECTION [None]
  - LUNG INFECTION [None]
